FAERS Safety Report 18429119 (Version 1)
Quarter: 2020Q4

REPORT INFORMATION
  Report Type: Spontaneous
  Country: US (occurrence: US)
  Receive Date: 20201027
  Receipt Date: 20201027
  Transmission Date: 20210114
  Serious: No
  Sender: FDA-Public Use
  Company Number: US-BIOGEN-2019BI00702525

PATIENT
  Age: 48 Year
  Sex: Female

DRUGS (1)
  1. TECFIDERA [Suspect]
     Active Substance: DIMETHYL FUMARATE
     Indication: MULTIPLE SCLEROSIS
     Route: 050
     Dates: start: 20180328

REACTIONS (9)
  - Anxiety [Not Recovered/Not Resolved]
  - Balance disorder [Recovered/Resolved]
  - Depression [Not Recovered/Not Resolved]
  - Confusional state [Unknown]
  - Product dose omission issue [Recovered/Resolved]
  - Muscle spasms [Recovered/Resolved]
  - Flushing [Not Recovered/Not Resolved]
  - Multiple sclerosis relapse [Recovered/Resolved]
  - Stress [Unknown]

NARRATIVE: CASE EVENT DATE: 20180329
